FAERS Safety Report 18503007 (Version 5)
Quarter: 2020Q4

REPORT INFORMATION
  Report Type: Report from Study
  Country: US (occurrence: US)
  Receive Date: 20201113
  Receipt Date: 20201231
  Transmission Date: 20210114
  Serious: Yes (Other)
  Sender: FDA-Public Use
  Company Number: US-GLAXOSMITHKLINE-US2020AMR136232

PATIENT
  Sex: Female

DRUGS (6)
  1. NIRAPARIB [Suspect]
     Active Substance: NIRAPARIB
     Indication: OVARIAN CANCER
     Dosage: 200 MG, QD
     Route: 065
     Dates: start: 20200713
  2. NIRAPARIB [Suspect]
     Active Substance: NIRAPARIB
     Dosage: UNK
     Route: 065
  3. NIRAPARIB [Suspect]
     Active Substance: NIRAPARIB
     Dosage: 200 MG, QD
  4. NIRAPARIB [Suspect]
     Active Substance: NIRAPARIB
     Dosage: 200 MG, QD
  5. NIRAPARIB [Suspect]
     Active Substance: NIRAPARIB
     Dosage: 200 MG, QD
     Route: 065
  6. NIRAPARIB [Suspect]
     Active Substance: NIRAPARIB
     Dosage: 200 MG, QD

REACTIONS (15)
  - Blood phosphorus increased [Not Recovered/Not Resolved]
  - Blood pressure increased [Recovered/Resolved]
  - Constipation [Recovered/Resolved]
  - Back pain [Unknown]
  - Herpes zoster [Unknown]
  - Off label use [Unknown]
  - Hyperhidrosis [Recovering/Resolving]
  - Pain in extremity [Unknown]
  - Fatigue [Unknown]
  - Anxiety [Unknown]
  - Breast pain [Unknown]
  - Rash pruritic [Recovered/Resolved]
  - Fall [Unknown]
  - Pelvic fracture [Unknown]
  - Insomnia [Recovered/Resolved]
